FAERS Safety Report 23015889 (Version 2)
Quarter: 2023Q4

REPORT INFORMATION
  Report Type: Spontaneous
  Country: RU (occurrence: RU)
  Receive Date: 20231002
  Receipt Date: 20231019
  Transmission Date: 20240109
  Serious: Yes (Hospitalization, Other)
  Sender: FDA-Public Use
  Company Number: RU-AMERICAN REGENT, INC.-2023ARI00013

PATIENT
  Age: 41 Year
  Sex: Female
  Weight: 80 kg

DRUGS (4)
  1. PACLITAXEL [Suspect]
     Active Substance: PACLITAXEL
     Indication: Chemotherapy
     Dosage: 6 COURSES (175 MG/M2 IV IN 3 HOURS ON THE 1ST DAY OF A 21-DAY COURSE)
     Route: 042
     Dates: start: 2018, end: 2018
  2. PACLITAXEL [Suspect]
     Active Substance: PACLITAXEL
     Dosage: 6 COURSES (175 MG/M2 IV IN 3 HOURS ON THE 1ST DAY WERE CARRIED OUT IN THE 21-DAY COURSE)
     Route: 042
     Dates: start: 20180511
  3. CARBOPLATIN [Suspect]
     Active Substance: CARBOPLATIN
     Indication: Chemotherapy
     Dosage: 6 COURSES (AUC 6 IV IN 1 HOUR ON THE 1ST DAY OF A 21-DAY COURSE)
     Route: 042
     Dates: start: 2018, end: 2018
  4. CARBOPLATIN [Suspect]
     Active Substance: CARBOPLATIN
     Dosage: 6 COURSES (AUC 5 IV IN 1 HOUR ON THE 1ST DAY OF A 21-DAY COURSE
     Route: 042
     Dates: start: 20180511

REACTIONS (1)
  - Dilated cardiomyopathy [Recovering/Resolving]

NARRATIVE: CASE EVENT DATE: 20211202
